FAERS Safety Report 10426211 (Version 2)
Quarter: 2014Q4

REPORT INFORMATION
  Report Type: Spontaneous
  Country: GB (occurrence: GB)
  Receive Date: 20140903
  Receipt Date: 20141001
  Transmission Date: 20150528
  Serious: Yes (Other)
  Sender: FDA-Public Use
  Company Number: GB-RANBAXY-2014RR-84909

PATIENT

DRUGS (1)
  1. TOPIRAMATE. [Suspect]
     Active Substance: TOPIRAMATE
     Indication: MIGRAINE
     Dosage: 12.5 MG
     Route: 048

REACTIONS (5)
  - Palpitations [Unknown]
  - Muscular weakness [Unknown]
  - Headache [Unknown]
  - Hypohidrosis [Unknown]
  - Corneal abrasion [Unknown]
